FAERS Safety Report 17816353 (Version 1)
Quarter: 2020Q2

REPORT INFORMATION
  Report Type: Spontaneous
  Country: AU (occurrence: AU)
  Receive Date: 20200522
  Receipt Date: 20200522
  Transmission Date: 20200714
  Serious: Yes (Other)
  Sender: FDA-Public Use
  Company Number: AU-SAMSUNG BIOEPIS-SB-2020-17137

PATIENT
  Age: 70 Year
  Sex: Female

DRUGS (2)
  1. INFLIXIMAB [Suspect]
     Active Substance: INFLIXIMAB
     Indication: GASTROINTESTINAL DISORDER
     Dosage: UNKNOWN
     Route: 042
  2. NIVOLUMAB [Suspect]
     Active Substance: NIVOLUMAB
     Indication: METASTATIC MALIGNANT MELANOMA
     Dosage: 195 MG
     Route: 065
     Dates: start: 20190126

REACTIONS (4)
  - Abdominal pain upper [Recovered/Resolved]
  - Prescribed underdose [Unknown]
  - Product use in unapproved indication [Unknown]
  - Colitis [Unknown]

NARRATIVE: CASE EVENT DATE: 20190808
